FAERS Safety Report 5231487-2 (Version None)
Quarter: 2007Q1

REPORT INFORMATION
  Report Type: 
  Country: None (occurrence: None)
  Receive Date: 20070202
  Receipt Date: 20070123
  Transmission Date: 20070707
  Serious: Yes (Hospitalization)
  Sender: FDA-Public Use
  Company Number: 2006EN000185

PATIENT
  Age: 75 Year
  Sex: Female

DRUGS (21)
  1. ONCASPAR [Suspect]
     Indication: PERITONEAL CARCINOMA
     Dosage: 1245 IU, QD; IV, 1245 IU, QD; IV
     Route: 042
     Dates: start: 20060925, end: 20060925
  2. ONCASPAR [Suspect]
     Indication: PERITONEAL CARCINOMA
     Dosage: 1245 IU, QD; IV, 1245 IU, QD; IV
     Route: 042
     Dates: start: 20061009, end: 20061009
  3. GEMCITABINE [Suspect]
     Indication: PERITONEAL CARCINOMA
     Dosage: 1666 MG, QD; IV; 1666 MG; QD, IV
     Route: 042
     Dates: start: 20061002, end: 20061002
  4. GEMCITABINE [Suspect]
     Indication: PERITONEAL CARCINOMA
     Dosage: 1666 MG, QD; IV; 1666 MG; QD, IV
     Route: 042
     Dates: start: 20061009, end: 20061009
  5. PROPAFENONE HCL [Concomitant]
  6. COZAAR [Concomitant]
  7. SYNTHROID [Concomitant]
  8. ESTERASE [Concomitant]
  9. HYDROCHLOROTHIAZIDE [Concomitant]
  10. VITAMIN CAP [Concomitant]
  11. CALCIUM [Concomitant]
  12. POTASSIUM CHLORIDE [Concomitant]
  13. ZOFRAN [Concomitant]
  14. REGLAN [Concomitant]
  15. MORPHINE [Concomitant]
  16. DEXAMETHASONE [Concomitant]
  17. MAGNESIUM SULFATE [Concomitant]
  18. MAGNESIUM OXIDE [Concomitant]
  19. PREVACID [Concomitant]
  20. ARIXTRA [Concomitant]
  21. ALPRAZOLAM [Concomitant]

REACTIONS (7)
  - ABASIA [None]
  - ASTHENIA [None]
  - BALANCE DISORDER [None]
  - FEEDING DISORDER [None]
  - NEUROPATHY PERIPHERAL [None]
  - NEUTROPENIA [None]
  - PLATELET COUNT DECREASED [None]
